FAERS Safety Report 13181075 (Version 1)
Quarter: 2017Q1

REPORT INFORMATION
  Report Type: Spontaneous
  Country: US (occurrence: US)
  Receive Date: 20170202
  Receipt Date: 20170202
  Transmission Date: 20170428
  Serious: No
  Sender: FDA-Public Use
  Company Number: US-SMITH AND NEPHEW, INC-2016SMT00622

PATIENT
  Sex: Male
  Weight: 148.75 kg

DRUGS (16)
  1. UNSPECIFIED STOOL SOFTENER [Concomitant]
  2. ^CIGITECEK^ [Concomitant]
     Dosage: UNK, 1X/DAY
  3. WARFARIN [Concomitant]
     Active Substance: WARFARIN
     Dosage: UNK UNK, 2X/DAY
  4. BABY ASPIRIN [Concomitant]
     Active Substance: ASPIRIN
  5. FIBERCON [Concomitant]
     Active Substance: CALCIUM POLYCARBOPHIL
  6. TYLENOL ARTHRITIS RELIEF [Concomitant]
  7. COLCHICINE. [Concomitant]
     Active Substance: COLCHICINE
  8. VITAMIN D [Concomitant]
     Active Substance: CHOLECALCIFEROL
  9. METFORMIN [Concomitant]
     Active Substance: METFORMIN HYDROCHLORIDE
  10. VASOTEC [Concomitant]
     Active Substance: ENALAPRIL MALEATE
  11. CARVEDILOL. [Concomitant]
     Active Substance: CARVEDILOL
  12. REGRANEX [Suspect]
     Active Substance: BECAPLERMIN
     Indication: ULCER
     Dosage: UNK, 1X/DAY
     Route: 061
     Dates: start: 20160628
  13. DEMADEX [Concomitant]
     Active Substance: TORSEMIDE
     Dosage: 10 MG, 1X/DAY
  14. AQUASIL FIBER [Concomitant]
  15. ZOCOR [Concomitant]
     Active Substance: SIMVASTATIN
  16. FLONASE [Concomitant]
     Active Substance: FLUTICASONE PROPIONATE

REACTIONS (3)
  - Off label use [Unknown]
  - Paraesthesia [Not Recovered/Not Resolved]
  - Tenderness [Unknown]
